FAERS Safety Report 8600407-2 (Version None)
Quarter: 2012Q3

REPORT INFORMATION
  Report Type: 
  Country: None (occurrence: None)
  Receive Date: 20120817
  Receipt Date: 20120813
  Transmission Date: 20120928
  Serious: No
  Sender: FDA-Public Use
  Company Number: US-PFIZER INC-2012176080

PATIENT
  Age: 42 Year
  Sex: Male

DRUGS (2)
  1. NARDIL [Suspect]
     Dosage: 15 MG, 6 TIMES A DAY
     Dates: start: 19950101
  2. NEURONTIN [Suspect]
     Dosage: 800 MG, 4X/DAY

REACTIONS (1)
  - DRUG INEFFECTIVE [None]
